FAERS Safety Report 9101559 (Version 1)
Quarter: 2013Q1

REPORT INFORMATION
  Report Type: Spontaneous
  Country: US (occurrence: None)
  Receive Date: 20130220
  Receipt Date: 20130220
  Transmission Date: 20140127
  Serious: Yes (Life-Threatening)
  Sender: FDA-Public Use
  Company Number: None

PATIENT
  Age: 65 Year
  Sex: Female
  Weight: 72.12 kg

DRUGS (2)
  1. MELOXICAM  15MG [Suspect]
     Indication: INFLAMMATION
     Dosage: ONE   DAILY WITH WATER   PO?12/18/2012  --  01/30/2013
     Route: 048
     Dates: start: 20121218, end: 20130130
  2. MELOXICAM  15MG [Suspect]
     Indication: ARTHRITIS
     Dosage: ONE   DAILY WITH WATER   PO?12/18/2012  --  01/30/2013
     Route: 048
     Dates: start: 20121218, end: 20130130

REACTIONS (9)
  - Dyspepsia [None]
  - Hypopnoea [None]
  - Palpitations [None]
  - Hot flush [None]
  - Hyperhidrosis [None]
  - Abdominal pain upper [None]
  - Faeces discoloured [None]
  - Feeling abnormal [None]
  - Thinking abnormal [None]
